FAERS Safety Report 10027140 (Version 5)
Quarter: 2014Q2

REPORT INFORMATION
  Report Type: Report from Study
  Country: NO (occurrence: NO)
  Receive Date: 20140321
  Receipt Date: 20140514
  Transmission Date: 20141212
  Serious: Yes (Life-Threatening, Hospitalization)
  Sender: FDA-Public Use
  Company Number: NO-ROCHE-1367191

PATIENT
  Age: 48 Year
  Sex: Female
  Weight: 77.4 kg

DRUGS (3)
  1. VEMURAFENIB [Suspect]
     Indication: MALIGNANT MELANOMA
     Dosage: LAST DOSE PRIOR TO SAE: 23/FEB/2014
     Route: 048
     Dates: start: 20120120, end: 20120229
  2. VEMURAFENIB [Suspect]
     Dosage: LAST DOSE PRIOR TO SAE: 23/FEB/2014
     Route: 048
     Dates: start: 20120301, end: 20140224
  3. ATACAND [Concomitant]
     Route: 065
     Dates: start: 20130614

REACTIONS (1)
  - Cerebral haemorrhage [Recovered/Resolved with Sequelae]
